FAERS Safety Report 5691173-1 (Version None)
Quarter: 2008Q2

REPORT INFORMATION
  Report Type: 
  Country: None (occurrence: None)
  Receive Date: 20080401
  Receipt Date: 20080401
  Transmission Date: 20081010
  Serious: Yes (Other)
  Sender: FDA-Public Use
  Company Number: None

PATIENT
  Age: 73 Year
  Sex: Female
  Weight: 70.7611 kg

DRUGS (18)
  1. VYTORIN [Suspect]
     Indication: CARDIAC DISORDER
     Dosage: 10/20 MG 1 HS PO
     Route: 048
     Dates: start: 20070704, end: 20080305
  2. DIOVAN HCT [Concomitant]
  3. PREMARIN [Concomitant]
  4. DESSICATED THYROID [Concomitant]
  5. LEVOTHYROXINE SODIUM [Concomitant]
  6. VITAMIN B-12 [Concomitant]
  7. CEPHALEXIN [Concomitant]
  8. GLUCOSAMINE HCL [Concomitant]
  9. CHONDROITIN SULFATE [Concomitant]
  10. MSM [Concomitant]
  11. ASPIRIN [Concomitant]
  12. VITAMIN D [Concomitant]
  13. VITAMIN E [Concomitant]
  14. CENTRUM MULTIVITAMIN [Concomitant]
  15. CALCIUM WITH MAGNESIUM [Concomitant]
  16. SELENIUM [Concomitant]
  17. CHROMIUM PICOLINATE [Concomitant]
  18. POMEGRANATE JUICE [Concomitant]

REACTIONS (6)
  - COGNITIVE DISORDER [None]
  - CONDITION AGGRAVATED [None]
  - FATIGUE [None]
  - FEELING ABNORMAL [None]
  - INTENTION TREMOR [None]
  - THINKING ABNORMAL [None]
